FAERS Safety Report 13918435 (Version 1)
Quarter: 2017Q3

REPORT INFORMATION
  Report Type: Spontaneous
  Country: US (occurrence: US)
  Receive Date: 20170829
  Receipt Date: 20170829
  Transmission Date: 20171127
  Serious: No
  Sender: FDA-Public Use
  Company Number: US-SA-2017SA052139

PATIENT
  Age: 87 Year
  Sex: Female

DRUGS (7)
  1. PRAVACHOL [Suspect]
     Active Substance: PRAVASTATIN SODIUM
     Route: 065
  2. SOTALOL. [Suspect]
     Active Substance: SOTALOL
     Route: 065
  3. LOPID [Suspect]
     Active Substance: GEMFIBROZIL
     Route: 065
  4. AMIODARONE HYDROCHLORIDE. [Suspect]
     Active Substance: AMIODARONE HYDROCHLORIDE
     Route: 065
  5. TETRACYCLINE HYDROCHLORIDE. [Suspect]
     Active Substance: TETRACYCLINE HYDROCHLORIDE
     Route: 065
  6. LASIX [Suspect]
     Active Substance: FUROSEMIDE
     Route: 065
  7. AVAPRO [Suspect]
     Active Substance: IRBESARTAN
     Route: 065

REACTIONS (1)
  - Drug hypersensitivity [Unknown]
